FAERS Safety Report 25337389 (Version 5)
Quarter: 2025Q4

REPORT INFORMATION
  Report Type: Spontaneous
  Country: US (occurrence: US)
  Receive Date: 20250520
  Receipt Date: 20251010
  Transmission Date: 20260118
  Serious: No
  Sender: BLUEPRINT MEDICINES
  Company Number: US-Blueprint Medicines Corporation-2025-AER-01052

PATIENT
  Age: 73 Year
  Sex: Female

DRUGS (3)
  1. AYVAKIT [Suspect]
     Active Substance: AVAPRITINIB
     Indication: Systemic mastocytosis
     Route: 048
     Dates: start: 20250429
  2. AYVAKIT [Suspect]
     Active Substance: AVAPRITINIB
     Route: 048
     Dates: start: 20250429
  3. AYVAKIT [Suspect]
     Active Substance: AVAPRITINIB
     Route: 048
     Dates: start: 20250429

REACTIONS (10)
  - Influenza like illness [Unknown]
  - Headache [Recovered/Resolved]
  - Insomnia [Unknown]
  - Periorbital swelling [Recovered/Resolved]
  - Nausea [Recovered/Resolved]
  - Laboratory test abnormal [Unknown]
  - Diarrhoea [Unknown]
  - Peripheral swelling [Recovered/Resolved]
  - Weight increased [Recovering/Resolving]
  - Hepatic enzyme abnormal [Unknown]

NARRATIVE: CASE EVENT DATE: 20250429
